FAERS Safety Report 15587407 (Version 2)
Quarter: 2018Q4

REPORT INFORMATION
  Report Type: Report from Study
  Country: CA (occurrence: CA)
  Receive Date: 20181105
  Receipt Date: 20181202
  Transmission Date: 20190205
  Serious: Yes (Other)
  Sender: FDA-Public Use
  Company Number: CA-ASTRAZENECA-2018SF43477

PATIENT
  Age: 77 Year
  Sex: Male

DRUGS (25)
  1. RITUXIMAB. [Suspect]
     Active Substance: RITUXIMAB
     Indication: MANTLE CELL LYMPHOMA
     Dosage: 185.0MG ONCE/SINGLE ADMINISTRATION
     Route: 042
     Dates: start: 20181024, end: 20181024
  2. FRAGMIN [Concomitant]
     Active Substance: DALTEPARIN SODIUM
     Indication: FACTOR V LEIDEN MUTATION
     Route: 048
     Dates: start: 20180827
  3. CETIRIZINE [Concomitant]
     Active Substance: CETIRIZINE HYDROCHLORIDE
     Indication: RASH MACULO-PAPULAR
     Route: 048
     Dates: start: 20180827
  4. RITUXIMAB. [Suspect]
     Active Substance: RITUXIMAB
     Indication: MANTLE CELL LYMPHOMA
     Dosage: 769.0MG ONCE/SINGLE ADMINISTRATION
     Route: 042
     Dates: start: 20180815, end: 20180815
  5. BENDAMUSTINE [Suspect]
     Active Substance: BENDAMUSTINE
     Indication: MANTLE CELL LYMPHOMA
     Dosage: 185.0MG ONCE/SINGLE ADMINISTRATION
     Route: 042
     Dates: start: 20180815, end: 20180815
  6. BENDAMUSTINE [Suspect]
     Active Substance: BENDAMUSTINE
     Indication: MANTLE CELL LYMPHOMA
     Dosage: 185.0MG ONCE/SINGLE ADMINISTRATION
     Route: 042
     Dates: start: 20181025, end: 20181025
  7. ACETAMINOPHEN. [Concomitant]
     Active Substance: ACETAMINOPHEN
     Indication: PROPHYLAXIS
     Dosage: 650.0MG AS REQUIRED
     Route: 048
     Dates: start: 20180814
  8. DEXAMETHASONE. [Concomitant]
     Active Substance: DEXAMETHASONE
     Indication: PROPHYLAXIS
     Dosage: 8.0MG AS REQUIRED
     Route: 048
     Dates: start: 20180814
  9. SENEKOT [Concomitant]
     Indication: CONSTIPATION
     Route: 048
     Dates: start: 20181015
  10. LASIX [Concomitant]
     Active Substance: FUROSEMIDE
     Indication: OEDEMA
     Route: 048
     Dates: start: 20180928
  11. ACALABRUTINIB. [Suspect]
     Active Substance: ACALABRUTINIB
     Indication: MANTLE CELL LYMPHOMA
     Route: 048
     Dates: start: 20180815, end: 20180911
  12. ACALABRUTINIB. [Suspect]
     Active Substance: ACALABRUTINIB
     Indication: MANTLE CELL LYMPHOMA
     Route: 048
     Dates: start: 20181024, end: 20181024
  13. BENDAMUSTINE [Suspect]
     Active Substance: BENDAMUSTINE
     Indication: MANTLE CELL LYMPHOMA
     Dosage: 185.0MG ONCE/SINGLE ADMINISTRATION
     Route: 042
     Dates: start: 20180913, end: 20180913
  14. BENADRYL [Concomitant]
     Active Substance: DIPHENHYDRAMINE HYDROCHLORIDE
     Indication: PROPHYLAXIS
     Dosage: 50.0MG AS REQUIRED
     Route: 048
     Dates: start: 20180814
  15. FLOMAX [Concomitant]
     Active Substance: TAMSULOSIN HYDROCHLORIDE
     Indication: NOCTURIA
     Route: 048
     Dates: start: 20180911
  16. ACALABRUTINIB. [Suspect]
     Active Substance: ACALABRUTINIB
     Indication: MANTLE CELL LYMPHOMA
     Route: 048
     Dates: start: 20180912, end: 20181002
  17. BENDAMUSTINE [Suspect]
     Active Substance: BENDAMUSTINE
     Indication: MANTLE CELL LYMPHOMA
     Dosage: 185.0MG ONCE/SINGLE ADMINISTRATION
     Route: 042
     Dates: start: 20180816, end: 20180816
  18. ONDANSETRON [Concomitant]
     Active Substance: ONDANSETRON
     Indication: PROPHYLAXIS
     Dosage: 8.0MG AS REQUIRED
     Route: 048
     Dates: start: 20180814
  19. ACALABRUTINIB. [Suspect]
     Active Substance: ACALABRUTINIB
     Indication: MANTLE CELL LYMPHOMA
     Route: 048
     Dates: start: 20181003, end: 20181003
  20. RITUXIMAB. [Suspect]
     Active Substance: RITUXIMAB
     Indication: MANTLE CELL LYMPHOMA
     Dosage: 769.0MG ONCE/SINGLE ADMINISTRATION
     Route: 042
     Dates: start: 20180912, end: 20180912
  21. BENDAMUSTINE [Suspect]
     Active Substance: BENDAMUSTINE
     Indication: MANTLE CELL LYMPHOMA
     Dosage: 185.0MG ONCE/SINGLE ADMINISTRATION
     Route: 042
     Dates: start: 20181122, end: 20181122
  22. RITUXIMAB. [Suspect]
     Active Substance: RITUXIMAB
     Indication: MANTLE CELL LYMPHOMA
     Dosage: 769.0MG ONCE/SINGLE ADMINISTRATION
     Route: 042
     Dates: start: 20181121, end: 20181121
  23. BENDAMUSTINE [Suspect]
     Active Substance: BENDAMUSTINE
     Indication: MANTLE CELL LYMPHOMA
     Dosage: 185.0MG ONCE/SINGLE ADMINISTRATION
     Route: 042
     Dates: start: 20180912, end: 20180912
  24. BENDAMUSTINE [Suspect]
     Active Substance: BENDAMUSTINE
     Indication: MANTLE CELL LYMPHOMA
     Dosage: 185.0MG ONCE/SINGLE ADMINISTRATION
     Route: 042
     Dates: start: 20181024, end: 20181024
  25. BENDAMUSTINE [Suspect]
     Active Substance: BENDAMUSTINE
     Indication: MANTLE CELL LYMPHOMA
     Dosage: 185.0MG ONCE/SINGLE ADMINISTRATION
     Route: 042
     Dates: start: 20181121, end: 20181121

REACTIONS (1)
  - Dermatitis exfoliative [Recovered/Resolved]

NARRATIVE: CASE EVENT DATE: 20181024
